FAERS Safety Report 5425075-2 (Version None)
Quarter: 2007Q3

REPORT INFORMATION
  Report Type: 
  Country: None (occurrence: None)
  Receive Date: 20070824
  Receipt Date: 20070815
  Transmission Date: 20080115
  Serious: Yes (Hospitalization)
  Sender: FDA-Public Use
  Company Number: US-JNJFOC-20070705482

PATIENT
  Sex: Female
  Weight: 86.18 kg

DRUGS (5)
  1. GALANTAMINE HYDROBROMIDE [Suspect]
     Indication: PROPHYLAXIS
  2. GALANTAMINE HYDROBROMIDE [Suspect]
     Indication: DEPRESSION
  3. PLACEBO [Suspect]
     Indication: PROPHYLAXIS
  4. PLACEBO [Suspect]
     Indication: DEPRESSION
  5. EFFEXOR [Concomitant]

REACTIONS (5)
  - CARDIAC ENZYMES INCREASED [None]
  - CHEST PAIN [None]
  - DIZZINESS [None]
  - ENTERITIS [None]
  - HYPERHIDROSIS [None]
